FAERS Safety Report 8051336-7 (Version None)
Quarter: 2012Q1

REPORT INFORMATION
  Report Type: 
  Country: None (occurrence: None)
  Receive Date: 20120117
  Receipt Date: 20101109
  Transmission Date: 20120608
  Serious: Yes (Death)
  Sender: FDA-Public Use
  Company Number: US-ROCHE-1028888

PATIENT
  Sex: Female

DRUGS (8)
  1. HERCEPTIN [Suspect]
     Indication: PRODUCT USED FOR UNKNOWN INDICATION
  2. VICODIN [Concomitant]
     Dosage: AS NEEDED
  3. GLUCOSAMINE [Concomitant]
  4. LOVENOX [Concomitant]
  5. MULTI-VITAMIN [Concomitant]
     Dosage: DAILY
  6. NEXIUM [Concomitant]
  7. VITAMIN E [Concomitant]
     Dosage: DAILY
  8. MYCELEX [Concomitant]

REACTIONS (1)
  - DEATH [None]
